FAERS Safety Report 10688416 (Version 2)
Quarter: 2015Q4

REPORT INFORMATION
  Report Type: Report from Study
  Country: DE (occurrence: DE)
  Receive Date: 20150102
  Receipt Date: 20151001
  Transmission Date: 20160304
  Serious: Yes (Hospitalization, Other)
  Sender: FDA-Public Use
  Company Number: DE-PFIZER INC-2014360016

PATIENT
  Age: 79 Year
  Sex: Female
  Weight: 65 kg

DRUGS (4)
  1. EXEMESTANE. [Suspect]
     Active Substance: EXEMESTANE
     Indication: BREAST CANCER
     Dosage: 25 MG, DAILY
     Dates: start: 20140918, end: 20141222
  2. AFINITOR [Suspect]
     Active Substance: EVEROLIMUS
     Dosage: 0.5 MG, DAILY
     Dates: start: 20141021, end: 20141110
  3. AFINITOR [Suspect]
     Active Substance: EVEROLIMUS
     Indication: BREAST CANCER
     Dosage: 10 MG, DAILY
     Dates: start: 20140918, end: 20141020
  4. AFINITOR [Suspect]
     Active Substance: EVEROLIMUS
     Dosage: 0.0 MG, DAILY
     Dates: start: 20141110, end: 20141222

REACTIONS (1)
  - Pneumonitis [Recovered/Resolved]

NARRATIVE: CASE EVENT DATE: 20141215
